FAERS Safety Report 24199086 (Version 1)
Quarter: 2024Q3

REPORT INFORMATION
  Report Type: Other
  Country: PT (occurrence: PT)
  Receive Date: 20240812
  Receipt Date: 20240812
  Transmission Date: 20241017
  Serious: Yes (Other)
  Sender: ASPEN
  Company Number: PT-MLMSERVICE-20240726-PI139829-00117-1

PATIENT

DRUGS (14)
  1. DEXAMETHASONE [Suspect]
     Active Substance: DEXAMETHASONE
     Indication: Metastases to central nervous system
     Dosage: UNK, MODIFIED SMILE REGIMEN
     Route: 065
     Dates: start: 202202
  2. DEXAMETHASONE [Suspect]
     Active Substance: DEXAMETHASONE
     Indication: Angiocentric lymphoma
     Dosage: UNK
     Route: 065
     Dates: start: 202202
  3. DEXAMETHASONE [Suspect]
     Active Substance: DEXAMETHASONE
     Indication: Mononeuropathy multiplex
  4. DEXAMETHASONE [Suspect]
     Active Substance: DEXAMETHASONE
     Indication: Cranial nerve disorder
  5. DEXAMETHASONE [Suspect]
     Active Substance: DEXAMETHASONE
     Indication: Axonal neuropathy
  6. LEVETIRACETAM [Concomitant]
     Active Substance: LEVETIRACETAM
     Indication: Epilepsy
     Dosage: UNK
     Route: 065
     Dates: start: 202202
  7. METHOTREXATE [Concomitant]
     Active Substance: METHOTREXATE
     Indication: Angiocentric lymphoma
     Dosage: HIGH DOSE, MODIFIED SMILE REGIMEN
     Route: 065
     Dates: start: 202202
  8. METHOTREXATE [Concomitant]
     Active Substance: METHOTREXATE
     Indication: Metastases to central nervous system
  9. IFOSFAMIDE [Concomitant]
     Active Substance: IFOSFAMIDE
     Indication: Angiocentric lymphoma
     Dosage: UNK, MODIFIED SMILE REGIMEN
     Route: 065
     Dates: start: 202202
  10. IFOSFAMIDE [Concomitant]
     Active Substance: IFOSFAMIDE
     Indication: Metastases to central nervous system
  11. PEG/L-ASPARAGINASE [Concomitant]
     Active Substance: PEGASPARGASE
     Indication: Angiocentric lymphoma
     Dosage: UNK, MODIFIED SMILE REGIMEN
     Route: 065
     Dates: start: 202202
  12. PEG/L-ASPARAGINASE [Concomitant]
     Active Substance: PEGASPARGASE
     Indication: Metastases to central nervous system
  13. ETOPOSIDE [Concomitant]
     Active Substance: ETOPOSIDE
     Indication: Metastases to central nervous system
     Dosage: UNK, MODIFIED SMILE REGIMEN
     Route: 065
     Dates: start: 202202
  14. ETOPOSIDE [Concomitant]
     Active Substance: ETOPOSIDE
     Indication: Angiocentric lymphoma

REACTIONS (4)
  - Off label use [Unknown]
  - Febrile neutropenia [Unknown]
  - Delirium [Unknown]
  - Klebsiella infection [Unknown]

NARRATIVE: CASE EVENT DATE: 20220201
